FAERS Safety Report 11237343 (Version 2)
Quarter: 2015Q3

REPORT INFORMATION
  Report Type: Report from Study
  Country: US (occurrence: US)
  Receive Date: 20150703
  Receipt Date: 20150722
  Transmission Date: 20151125
  Serious: No
  Sender: FDA-Public Use
  Company Number: PHEH2015US012117

PATIENT
  Sex: Male
  Weight: 81.63 kg

DRUGS (1)
  1. GILENYA [Suspect]
     Active Substance: FINGOLIMOD HYDROCHLORIDE
     Indication: MULTIPLE SCLEROSIS
     Dosage: 0.5 MG, QD
     Route: 048
     Dates: start: 20150327

REACTIONS (5)
  - Balance disorder [Unknown]
  - Anxiety [Recovering/Resolving]
  - Dizziness [Recovering/Resolving]
  - Contusion [Unknown]
  - Mental disorder [Unknown]
